FAERS Safety Report 24738393 (Version 1)
Quarter: 2024Q4

REPORT INFORMATION
  Report Type: Spontaneous
  Country: GB (occurrence: GB)
  Receive Date: 20241216
  Receipt Date: 20241216
  Transmission Date: 20250114
  Serious: Yes (Life-Threatening, Other)
  Sender: PFIZER
  Company Number: GB-MHRA-TPP4997579C6667540YC1733839046807

PATIENT
  Age: 38 Year
  Sex: Female
  Weight: 70 kg

DRUGS (2)
  1. CLINDAMYCIN HYDROCHLORIDE [Suspect]
     Active Substance: CLINDAMYCIN HYDROCHLORIDE
     Indication: Ill-defined disorder
     Dosage: UNK
     Dates: start: 20240503, end: 20240503
  2. SOOLANTRA [Concomitant]
     Active Substance: IVERMECTIN
     Indication: Ill-defined disorder
     Dosage: APPLY ONCE A DAY AS DIRECTED.
     Dates: start: 20241210

REACTIONS (2)
  - Swelling face [Recovered/Resolved]
  - Dyspnoea [Unknown]

NARRATIVE: CASE EVENT DATE: 20240503
